FAERS Safety Report 19581097 (Version 1)
Quarter: 2021Q3

REPORT INFORMATION
  Report Type: Spontaneous
  Country: US (occurrence: US)
  Receive Date: 20210717
  Receipt Date: 20210717
  Transmission Date: 20211014
  Serious: Yes (Hospitalization)
  Sender: FDA-Public Use
  Company Number: None

PATIENT
  Age: 62 Year
  Sex: Female
  Weight: 63.5 kg

DRUGS (2)
  1. BEVACIZUMAB (RHUMAB VEGF) [Suspect]
     Active Substance: BEVACIZUMAB
     Dates: end: 20210608
  2. DOXIL [Suspect]
     Active Substance: DOXORUBICIN HYDROCHLORIDE
     Dates: end: 20210608

REACTIONS (18)
  - Cardiac disorder [None]
  - Pulmonary hypertension [None]
  - Hypertension [None]
  - Encephalopathy [None]
  - Haemorrhage [None]
  - Right ventricular enlargement [None]
  - Respiratory alkalosis [None]
  - Ammonia increased [None]
  - Malnutrition [None]
  - Brain natriuretic peptide increased [None]
  - Pulmonary embolism [None]
  - Systolic dysfunction [None]
  - Deep vein thrombosis [None]
  - Troponin increased [None]
  - Tachycardia [None]
  - Blood parathyroid hormone decreased [None]
  - Hypercalcaemia of malignancy [None]
  - Tachypnoea [None]

NARRATIVE: CASE EVENT DATE: 20210622
